FAERS Safety Report 6268362-0 (Version None)
Quarter: 2009Q3

REPORT INFORMATION
  Report Type: 
  Country: None (occurrence: None)
  Receive Date: 20090713
  Receipt Date: 20090713
  Transmission Date: 20100115
  Serious: No
  Sender: FDA-Public Use
  Company Number: None

PATIENT
  Age: 32 Year
  Sex: Female
  Weight: 90.7194 kg

DRUGS (1)
  1. LEVAQUIN [Suspect]
     Indication: STAPHYLOCOCCAL INFECTION
     Dosage: 750MG X 10 DAYS DAILY PO
     Route: 048
     Dates: start: 20090504, end: 20090513

REACTIONS (4)
  - ARTHRALGIA [None]
  - IMPAIRED WORK ABILITY [None]
  - MYALGIA [None]
  - TENDON PAIN [None]
